FAERS Safety Report 14055713 (Version 1)
Quarter: 2017Q4

REPORT INFORMATION
  Report Type: Spontaneous
  Country: DK (occurrence: DK)
  Receive Date: 20171006
  Receipt Date: 20171006
  Transmission Date: 20180321
  Serious: Yes (Life-Threatening)
  Sender: FDA-Public Use
  Company Number: DK-NOVOPROD-565276

PATIENT
  Age: 75 Year
  Sex: Female
  Weight: 80 kg

DRUGS (10)
  1. COLCHICINE. [Concomitant]
     Active Substance: COLCHICINE
     Indication: CRYSTALLURIA
     Dosage: ACCORDING TO PRESCRIPTION
     Route: 048
     Dates: start: 20150326, end: 201709
  2. SPIRIX [Concomitant]
     Active Substance: SPIRONOLACTONE
     Indication: CARDIAC FAILURE
     Dosage: STRENGTH 25 MG
     Route: 048
     Dates: start: 20130131, end: 201709
  3. VICTOZA [Suspect]
     Active Substance: LIRAGLUTIDE
     Indication: DIABETES MELLITUS
     Dosage: STRENGTH: 6MG/ML
     Route: 058
     Dates: start: 20120816
  4. TRAMADOL ^ACTAVIS^ [Concomitant]
     Active Substance: TRAMADOL
     Indication: PAIN
     Dosage: 1 TABLET AT NIGHT SOME TIMES. STRENGTH: 50 MG
     Route: 048
     Dates: start: 20141218
  5. OMEPRAZOL ^ACTAVIS^ [Concomitant]
     Indication: GASTROOESOPHAGEAL REFLUX DISEASE
     Dosage: STRENGTH: 20 MG
     Route: 048
     Dates: start: 20140108
  6. SIMVASTATIN ^ACTAVIS^ [Concomitant]
     Active Substance: SIMVASTATIN
     Indication: HYPERCHOLESTEROLAEMIA
     Dosage: STRENGTH: 40 MG
     Route: 048
     Dates: start: 20130702, end: 201709
  7. ZOLPIDEM ^2CARE4^ [Concomitant]
     Indication: SLEEP DISORDER
     Dosage: ?-1 TABLET BEFORE BEDTIME. STRENGHT: 10 MG
     Route: 048
     Dates: start: 20150202
  8. ANCOZAN [Concomitant]
     Active Substance: LOSARTAN POTASSIUM
     Indication: CARDIAC FAILURE
     Dosage: STRENGTH: 50 MG
     Route: 048
     Dates: start: 20130705
  9. BISOPROLOL ^KRKA^ [Concomitant]
     Indication: CARDIAC FAILURE
     Dosage: STRENGTH: 5 MG
     Route: 048
     Dates: start: 20170104
  10. FURIX RETARD [Concomitant]
     Active Substance: FUROSEMIDE
     Indication: CARDIAC FAILURE
     Dosage: STRENGTH: 60 MG
     Route: 048
     Dates: start: 20140530

REACTIONS (1)
  - Pancreatic carcinoma [Not Recovered/Not Resolved]

NARRATIVE: CASE EVENT DATE: 20170901
